FAERS Safety Report 6397401-1 (Version None)
Quarter: 2009Q4

REPORT INFORMATION
  Report Type: 
  Country: None (occurrence: None)
  Receive Date: 20091012
  Receipt Date: 20090930
  Transmission Date: 20100525
  Serious: Yes (Other)
  Sender: FDA-Public Use
  Company Number: PHHY2009PL42174

PATIENT
  Sex: Female

DRUGS (1)
  1. ELIDEL [Suspect]
     Indication: RASH
     Dosage: ONCE DAILY
     Route: 061
     Dates: start: 20090922, end: 20090923

REACTIONS (4)
  - ERYTHEMA [None]
  - ERYTHEMA MULTIFORME [None]
  - EYE IRRITATION [None]
  - PRURITUS [None]
